FAERS Safety Report 5719215-5 (Version None)
Quarter: 2008Q2

REPORT INFORMATION
  Report Type: 
  Country: None (occurrence: None)
  Receive Date: 20080428
  Receipt Date: 20080421
  Transmission Date: 20081010
  Serious: Yes (Hospitalization)
  Sender: FDA-Public Use
  Company Number: SE-ELI_LILLY_AND_COMPANY-SE200804005044

PATIENT
  Sex: Male

DRUGS (8)
  1. ZYPREXA [Suspect]
     Indication: PSYCHOTIC DISORDER
     Route: 048
     Dates: start: 20080101, end: 20080101
  2. ZYPREXA [Suspect]
     Dosage: 60 MG, DAILY (1/D)
     Route: 048
     Dates: start: 20080201, end: 20080331
  3. DIAZEPAM [Concomitant]
     Dosage: 5 MG, UNK
  4. LORAZEPAM [Concomitant]
     Dosage: 1 MG, UNK
  5. CISORDINOL-ACUTARD [Concomitant]
     Dosage: 50 MG/ML, UNK
  6. IMOVANE [Concomitant]
     Dosage: 7.5 MG, UNK
  7. LITHIONIT [Concomitant]
     Dosage: 42 MG, UNK
  8. HALDOL [Concomitant]
     Dosage: 5 MG/ML, UNK

REACTIONS (2)
  - OVERDOSE [None]
  - PULMONARY EMBOLISM [None]
